FAERS Safety Report 7256389-1 (Version None)
Quarter: 2011Q1

REPORT INFORMATION
  Report Type: 
  Country: None (occurrence: None)
  Receive Date: 20110129
  Receipt Date: 20100707
  Transmission Date: 20110831
  Serious: No
  Sender: FDA-Public Use
  Company Number: US-ABBOTT-10P-163-0656523-00

PATIENT
  Weight: 89.892 kg

DRUGS (3)
  1. HUMIRA [Suspect]
     Indication: PSORIATIC ARTHROPATHY
     Dates: start: 20070601, end: 20100701
  2. IMITREX [Concomitant]
  3. CLARITIN [Concomitant]

REACTIONS (5)
  - ARTHRALGIA [None]
  - OEDEMA PERIPHERAL [None]
  - DRUG INEFFECTIVE [None]
  - JOINT SWELLING [None]
  - BACK PAIN [None]
